FAERS Safety Report 7375881-2 (Version None)
Quarter: 2011Q1

REPORT INFORMATION
  Report Type: 
  Country: None (occurrence: None)
  Receive Date: 20110325
  Receipt Date: 20110321
  Transmission Date: 20110831
  Serious: Yes (Hospitalization)
  Sender: FDA-Public Use
  Company Number: A0919847A

PATIENT
  Age: 75 Year
  Sex: Female

DRUGS (2)
  1. PAZOPANIB [Suspect]
     Indication: NEOPLASM
     Dosage: 600MG PER DAY
     Route: 048
     Dates: start: 20110303, end: 20110317
  2. IXABEPILONE [Suspect]
     Indication: NEOPLASM
     Dosage: 51.2MG SINGLE DOSE
     Route: 042
     Dates: start: 20110303, end: 20110303

REACTIONS (1)
  - FEBRILE NEUTROPENIA [None]
